FAERS Safety Report 4492053-X (Version None)
Quarter: 2004Q4

REPORT INFORMATION
  Report Type: 
  Country: None (occurrence: None)
  Receive Date: 20041101
  Receipt Date: 20041021
  Transmission Date: 20050328
  Serious: Yes (Disabling)
  Sender: FDA-Public Use
  Company Number: 2004-121536-NL

PATIENT
  Age: 74 Year
  Sex: Male

DRUGS (2)
  1. MIRTAZAPINE [Suspect]
     Indication: DEPRESSION
     Dosage: DF /30 MG, ORAL
     Route: 048
     Dates: start: 20010101, end: 20040501
  2. MIRTAZAPINE [Suspect]
     Indication: DEPRESSION
     Dosage: DF /30 MG, ORAL
     Route: 048
     Dates: end: 20040601

REACTIONS (1)
  - VISUAL ACUITY REDUCED [None]
